FAERS Safety Report 17739894 (Version 1)
Quarter: 2020Q2

REPORT INFORMATION
  Report Type: Spontaneous
  Country: PL (occurrence: PL)
  Receive Date: 20200504
  Receipt Date: 20200504
  Transmission Date: 20200714
  Serious: Yes (Life-Threatening)
  Sender: FDA-Public Use
  Company Number: PL-ASTRAZENECA-2020SE57230

PATIENT
  Age: 27 Year
  Sex: Female
  Weight: 70 kg

DRUGS (2)
  1. ZAHRON [Suspect]
     Active Substance: ROSUVASTATIN CALCIUM
     Dosage: 14 TABLETS A 20 MG
     Route: 048
     Dates: start: 20200414, end: 20200414
  2. BETANIL FORTE [Suspect]
     Active Substance: BETAHISTINE HYDROCHLORIDE
     Dosage: 20 TABLETS A 24 MG
     Route: 048
     Dates: start: 20200414, end: 20200414

REACTIONS (3)
  - Anxiety [Recovered/Resolved]
  - Overdose [Recovered/Resolved]
  - Depressed mood [Recovered/Resolved]

NARRATIVE: CASE EVENT DATE: 20200414
